FAERS Safety Report 15592575 (Version 5)
Quarter: 2021Q4

REPORT INFORMATION
  Report Type: Spontaneous
  Country: US (occurrence: US)
  Receive Date: 20181106
  Receipt Date: 20211105
  Transmission Date: 20220303
  Serious: Yes (Disabling, Other)
  Sender: FDA-Public Use
  Company Number: US-PFIZER INC-2018444548

PATIENT
  Age: 62 Year
  Sex: Female
  Weight: 77.098 kg

DRUGS (2)
  1. PRISTIQ EXTENDED-RELEASE [Suspect]
     Active Substance: DESVENLAFAXINE SUCCINATE
     Indication: Depression
     Dosage: 100 MG, 1X/DAY (AT THE SAME TIME EACH DAY/1 PO QD)
     Route: 048
  2. CLIMARA [Concomitant]
     Active Substance: ESTRADIOL
     Indication: Menopause
     Dosage: UNK, 1X/DAY (0.045-0.015 MG/24)
     Route: 062
     Dates: start: 2014

REACTIONS (3)
  - Vaginal haemorrhage [Not Recovered/Not Resolved]
  - Drug dependence [Unknown]
  - Wrong strength [Unknown]

NARRATIVE: CASE EVENT DATE: 20170101
